FAERS Safety Report 6967036-8 (Version None)
Quarter: 2010Q3

REPORT INFORMATION
  Report Type: 
  Country: None (occurrence: None)
  Receive Date: 20100907
  Receipt Date: 20100730
  Transmission Date: 20110219
  Serious: Yes (Hospitalization)
  Sender: FDA-Public Use
  Company Number: US-BAYER-201021621NA

PATIENT
  Age: 27 Year
  Sex: Female
  Weight: 49 kg

DRUGS (6)
  1. YASMIN [Suspect]
     Indication: CONTRACEPTION
     Route: 048
     Dates: start: 20010801, end: 20041201
  2. ADVIL LIQUI-GELS [Concomitant]
  3. ACETAMINOPHEN [Concomitant]
  4. ANTIBIOTICS [Concomitant]
  5. PEPTO BISMOL [Concomitant]
     Indication: GALLBLADDER PAIN
     Dates: start: 20020101
  6. TUMS [Concomitant]
     Indication: GALLBLADDER PAIN
     Dates: start: 20020101

REACTIONS (5)
  - ABDOMINAL PAIN UPPER [None]
  - CHOLECYSTITIS CHRONIC [None]
  - CHOLELITHIASIS [None]
  - HAEMANGIOMA OF LIVER [None]
  - VOMITING [None]
